FAERS Safety Report 6779609-6 (Version None)
Quarter: 2010Q2

REPORT INFORMATION
  Report Type: 
  Country: None (occurrence: None)
  Receive Date: 20100618
  Receipt Date: 20100611
  Transmission Date: 20101027
  Serious: Yes (Death)
  Sender: FDA-Public Use
  Company Number: A0865756A

PATIENT

DRUGS (1)
  1. ARIXTRA [Suspect]
     Route: 065

REACTIONS (1)
  - HAEMORRHAGE INTRACRANIAL [None]
